FAERS Safety Report 15416564 (Version 2)
Quarter: 2018Q4

REPORT INFORMATION
  Report Type: Spontaneous
  Country: JP (occurrence: JP)
  Receive Date: 20180924
  Receipt Date: 20181219
  Transmission Date: 20190204
  Serious: No
  Sender: FDA-Public Use
  Company Number: JP-TEVA-2018-JP-957437

PATIENT
  Age: 8 Decade
  Sex: Male

DRUGS (1)
  1. RISEDRONATE SODIUM - BP [Suspect]
     Active Substance: RISEDRONATE SODIUM
     Indication: OSTEOPOROSIS
     Route: 048

REACTIONS (1)
  - Oral disorder [Recovered/Resolved]

NARRATIVE: CASE EVENT DATE: 20180911
